FAERS Safety Report 13759113 (Version 3)
Quarter: 2018Q1

REPORT INFORMATION
  Report Type: Report from Study
  Country: None (occurrence: US)
  Receive Date: 20170717
  Receipt Date: 20180308
  Transmission Date: 20180508
  Serious: Yes (Hospitalization, Other)
  Sender: FDA-Public Use
  Company Number: US-ABBVIE-16K-163-1598936-00

PATIENT
  Age: 52 Year
  Sex: Male

DRUGS (2)
  1. HUMIRA [Suspect]
     Active Substance: ADALIMUMAB
     Indication: CROHN^S DISEASE
     Route: 058
     Dates: start: 20160314
  2. HUMIRA [Suspect]
     Active Substance: ADALIMUMAB
     Route: 058
     Dates: start: 2017

REACTIONS (12)
  - Swelling [Unknown]
  - Contusion [Unknown]
  - Peripheral swelling [Not Recovered/Not Resolved]
  - Contusion [Unknown]
  - Pain [Unknown]
  - Gastrointestinal haemorrhage [Unknown]
  - Victim of crime [Unknown]
  - Arthropod bite [Unknown]
  - Injection site bruising [Unknown]
  - Blood iron decreased [Unknown]
  - Crohn^s disease [Recovering/Resolving]
  - Sleep apnoea syndrome [Unknown]

NARRATIVE: CASE EVENT DATE: 2016
